FAERS Safety Report 5915821-3 (Version None)
Quarter: 2008Q4

REPORT INFORMATION
  Report Type: 
  Country: None (occurrence: None)
  Receive Date: 20081010
  Receipt Date: 20080929
  Transmission Date: 20090506
  Serious: Yes (Death)
  Sender: FDA-Public Use
  Company Number: JP-PFIZER INC-2008082912

PATIENT
  Age: 70 Year
  Sex: Male

DRUGS (2)
  1. IRINOTECAN HCL [Suspect]
     Indication: GASTRIC CANCER
     Dosage: DAILY DOSE:125MG
     Dates: start: 20080826, end: 20080826
  2. MITOMYCIN [Suspect]
     Indication: GASTRIC CANCER
     Dosage: DAILY DOSE:6MG
     Route: 042
     Dates: start: 20080826, end: 20080826

REACTIONS (1)
  - PANCYTOPENIA [None]
